FAERS Safety Report 14499054 (Version 1)
Quarter: 2018Q1

REPORT INFORMATION
  Report Type: Spontaneous
  Country: IT (occurrence: IT)
  Receive Date: 20180207
  Receipt Date: 20180207
  Transmission Date: 20180509
  Serious: Yes (Other)
  Sender: FDA-Public Use
  Company Number: IT-TEVA-2018-IT-855386

PATIENT
  Age: 44 Year
  Sex: Male
  Weight: 68 kg

DRUGS (4)
  1. SYNFLEX [Concomitant]
     Indication: PAIN
     Route: 048
     Dates: start: 20160122, end: 20160122
  2. IBUPROFEN. [Suspect]
     Active Substance: IBUPROFEN
     Dosage: 3 DOSAGE FORMS DAILY;
     Route: 048
     Dates: start: 20160121, end: 20160122
  3. AMOXICILLIN. [Suspect]
     Active Substance: AMOXICILLIN
     Indication: LYMPHADENITIS
     Dosage: 2 GRAM DAILY;
     Route: 048
     Dates: start: 20160121, end: 20160122
  4. ACICLOVIR [Concomitant]
     Active Substance: ACYCLOVIR
     Indication: ORAL HERPES
     Route: 048

REACTIONS (2)
  - Dysphonia [Recovered/Resolved]
  - Face oedema [Recovered/Resolved]

NARRATIVE: CASE EVENT DATE: 20160122
